FAERS Safety Report 16120811 (Version 1)
Quarter: 2019Q1

REPORT INFORMATION
  Report Type: Spontaneous
  Country: SE (occurrence: SE)
  Receive Date: 20190327
  Receipt Date: 20190327
  Transmission Date: 20190418
  Serious: Yes (Other)
  Sender: FDA-Public Use
  Company Number: SE-TEVA-2019-SE-1029876

PATIENT
  Sex: Male

DRUGS (1)
  1. OLANZAPIN ACTAVIS [Suspect]
     Active Substance: OLANZAPINE
     Route: 065

REACTIONS (1)
  - Diabetes mellitus [Unknown]
